FAERS Safety Report 9861077 (Version 2)
Quarter: 2014Q1

REPORT INFORMATION
  Report Type: Spontaneous
  Country: JP (occurrence: JP)
  Receive Date: 20140202
  Receipt Date: 20140202
  Transmission Date: 20141002
  Serious: No
  Sender: FDA-Public Use
  Company Number: JP-ALLERGAN-1303260US

PATIENT
  Age: 22 Year
  Sex: Female

DRUGS (1)
  1. BOTOX VISTA [Suspect]
     Indication: MUSCLE HYPERTROPHY
     Dosage: 50 UNITS, SINGLE
     Dates: start: 20130211, end: 20130211

REACTIONS (2)
  - Off label use [Unknown]
  - Facial paresis [Unknown]
